FAERS Safety Report 6004815-8 (Version None)
Quarter: 2008Q4

REPORT INFORMATION
  Report Type: 
  Country: None (occurrence: None)
  Receive Date: 20081215
  Receipt Date: 20081103
  Transmission Date: 20090506
  Serious: Yes (Other)
  Sender: FDA-Public Use
  Company Number: 08-587

PATIENT
  Age: 83 Year
  Sex: Female

DRUGS (10)
  1. ALEVE [Suspect]
     Indication: MYALGIA
     Dosage: 660 MG, DAILY, ORAL
     Route: 048
     Dates: start: 20081021, end: 20081026
  2. POTASSSIUM [Concomitant]
  3. PLAVIX [Concomitant]
  4. ALLEGRA [Concomitant]
  5. SYNTHROID [Concomitant]
  6. ASPIRIN [Concomitant]
  7. VYTORIN [Concomitant]
  8. PRANDIN [Concomitant]
  9. GENERIC WATER PILL [Concomitant]
  10. FIORINAL [Concomitant]

REACTIONS (1)
  - BLOOD GLUCOSE INCREASED [None]
